FAERS Safety Report 19953145 (Version 1)
Quarter: 2021Q4

REPORT INFORMATION
  Report Type: Spontaneous
  Country: TR (occurrence: TR)
  Receive Date: 20211014
  Receipt Date: 20211014
  Transmission Date: 20220303
  Serious: Yes (Hospitalization)
  Sender: FDA-Public Use
  Company Number: TR-STRIDES ARCOLAB LIMITED-2021SP028649

PATIENT
  Age: 35 Year
  Sex: Male

DRUGS (11)
  1. TACROLIMUS [Interacting]
     Active Substance: TACROLIMUS
     Indication: Renal transplant
     Dosage: UNK
     Route: 065
     Dates: start: 2019, end: 2019
  2. TACROLIMUS [Interacting]
     Active Substance: TACROLIMUS
     Dosage: UNK
     Route: 065
     Dates: start: 2019
  3. PREDNISOLONE [Suspect]
     Active Substance: PREDNISOLONE
     Indication: Renal transplant
     Dosage: 10 MILLIGRAM, PER DAY
     Route: 065
     Dates: start: 2019
  4. PREDNISOLONE [Suspect]
     Active Substance: PREDNISOLONE
     Dosage: 40 MILLIGRAM, PER DAY
     Route: 065
     Dates: start: 2019
  5. MYCOPHENOLATE MOFETIL [Suspect]
     Active Substance: MYCOPHENOLATE MOFETIL
     Indication: Renal transplant
     Dosage: 1000 MILLIGRAM, BID
     Route: 065
     Dates: start: 2019
  6. MYCOPHENOLIC ACID [Suspect]
     Active Substance: MYCOPHENOLIC ACID
     Indication: Renal transplant
     Dosage: UNK
     Route: 065
     Dates: start: 2019
  7. TIGECYCLINE [Interacting]
     Active Substance: TIGECYCLINE
     Indication: Cellulitis
     Dosage: UNK
     Route: 065
     Dates: start: 2019, end: 2019
  8. TIGECYCLINE [Interacting]
     Active Substance: TIGECYCLINE
     Dosage: UNK, RESTARTED AS CARBAPENEM SPARING AGENT FOR 3 DAYS AND DE-ESCALATED
     Route: 065
     Dates: start: 2019
  9. METHYLPREDNISOLONE [Suspect]
     Active Substance: METHYLPREDNISOLONE
     Indication: Renal transplant
     Dosage: 500 MILLIGRAM, 3 CONSECUTIVE DAYS
     Route: 065
     Dates: start: 2019, end: 2019
  10. METHYLPREDNISOLONE [Suspect]
     Active Substance: METHYLPREDNISOLONE
     Dosage: 500 MILLIGRAM, 3 DAYS
     Route: 065
     Dates: start: 2019, end: 2019
  11. THYMOCYTE IMMUNE GLOBULIN NOS [Concomitant]
     Active Substance: THYMOCYTE IMMUNE GLOBULIN NOS
     Indication: Renal transplant
     Dosage: 500 MILLIGRAM, 5 CONSECUTIVE DAYS
     Route: 065
     Dates: start: 2019, end: 2019

REACTIONS (9)
  - Drug interaction [Unknown]
  - General physical health deterioration [Recovered/Resolved]
  - Pancreatitis acute [Recovered/Resolved]
  - Cytomegalovirus viraemia [Recovered/Resolved]
  - Staphylococcal infection [Unknown]
  - Bacterial infection [Unknown]
  - Cellulitis [Unknown]
  - Abdominal infection [Unknown]
  - Kidney transplant rejection [Unknown]

NARRATIVE: CASE EVENT DATE: 20190101
